FAERS Safety Report 9521604 (Version 2)
Quarter: 2014Q3

REPORT INFORMATION
  Report Type: Spontaneous
  Country: US (occurrence: None)
  Receive Date: 20130911
  Receipt Date: 20140714
  Transmission Date: 20150326
  Serious: Yes (Death, Hospitalization, Other)
  Sender: FDA-Public Use
  Company Number: AEUSA201300048

PATIENT
  Age: 3 Month
  Sex: Female
  Weight: 6.1 kg

DRUGS (1)
  1. GAMUNEX [Suspect]
     Active Substance: HUMAN IMMUNOGLOBULIN G
     Indication: KAWASAKI^S DISEASE
     Dosage: ;SC
     Route: 042
     Dates: start: 20130110, end: 20130110

REACTIONS (8)
  - Thrombocytosis [None]
  - Histiocytosis haematophagic [None]
  - Antibody test positive [None]
  - Rhesus antibodies positive [None]
  - Haemolysis [None]
  - Multi-organ failure [None]
  - Hyperbilirubinaemia [None]
  - Serum ferritin increased [None]

NARRATIVE: CASE EVENT DATE: 20130110
